FAERS Safety Report 7061699-7 (Version None)
Quarter: 2010Q4

REPORT INFORMATION
  Report Type: 
  Country: None (occurrence: None)
  Receive Date: 20101026
  Receipt Date: 20101018
  Transmission Date: 20110411
  Serious: Yes (Hospitalization)
  Sender: FDA-Public Use
  Company Number: JP-ROCHE-680151

PATIENT
  Sex: Male

DRUGS (18)
  1. TOCILIZUMAB [Suspect]
     Indication: RHEUMATOID ARTHRITIS
     Route: 041
     Dates: start: 20090306, end: 20090306
  2. TOCILIZUMAB [Suspect]
     Route: 041
     Dates: start: 20090330, end: 20090330
  3. TOCILIZUMAB [Suspect]
     Route: 041
     Dates: start: 20090423, end: 20090423
  4. TOCILIZUMAB [Suspect]
     Route: 041
     Dates: start: 20090520, end: 20090520
  5. TOCILIZUMAB [Suspect]
     Route: 041
     Dates: start: 20090616, end: 20090616
  6. TOCILIZUMAB [Suspect]
     Dosage: THERAPY: DISCONTINUED.
     Route: 041
     Dates: start: 20090713, end: 20090713
  7. AZULFIDINE [Concomitant]
     Dosage: DRUG: SALAZOSULFAPYRIDINE, FORM: ENTERIC
     Route: 048
     Dates: end: 20090519
  8. AZULFIDINE [Concomitant]
     Route: 048
     Dates: start: 20090520, end: 20090712
  9. RHEUMATREX [Concomitant]
     Route: 048
     Dates: end: 20090615
  10. RHEUMATREX [Concomitant]
     Route: 048
     Dates: start: 20090616, end: 20090823
  11. ISCOTIN [Concomitant]
     Dosage: FORM: PERORAL AGENT
     Route: 048
     Dates: end: 20090519
  12. PREDNISOLONE [Concomitant]
     Route: 048
  13. OMEPRAL [Concomitant]
     Dosage: FORM: ENTERIC COATING DRUG
     Route: 048
  14. LORCAM [Concomitant]
     Route: 048
  15. FOLIAMIN [Concomitant]
     Dosage: FORM: PERORAL AGENT
     Route: 048
  16. PYDOXAL [Concomitant]
     Route: 048
  17. TALION [Concomitant]
     Route: 048
     Dates: start: 20090306
  18. CALONAL [Concomitant]
     Dosage: SINGLE USE (DOSAGE DURING DAY: 400 MG)
     Route: 048
     Dates: start: 20090307, end: 20090309

REACTIONS (3)
  - ENTEROCOLITIS [None]
  - PNEUMONIA [None]
  - URINARY TRACT INFECTION [None]
